FAERS Safety Report 23996427 (Version 2)
Quarter: 2024Q2

REPORT INFORMATION
  Report Type: Report from Study
  Country: US (occurrence: US)
  Receive Date: 20240620
  Receipt Date: 20240626
  Transmission Date: 20240716
  Serious: Yes (Other)
  Sender: FDA-Public Use
  Company Number: US-ABBVIE-5806789

PATIENT
  Sex: Female
  Weight: 68.945 kg

DRUGS (5)
  1. RINVOQ [Suspect]
     Active Substance: UPADACITINIB
     Indication: Crohn^s disease
     Dosage: FORM STRENGTH: 15 MILLIGRAM, DOSE INCREASED
     Route: 048
     Dates: start: 202405
  2. RINVOQ [Suspect]
     Active Substance: UPADACITINIB
     Indication: Crohn^s disease
     Dosage: FORM STRENGTH: 15 MILLIGRAM
     Route: 048
     Dates: start: 20240214, end: 202405
  3. ESTRADIOL [Concomitant]
     Active Substance: ESTRADIOL
     Indication: Hormone replacement therapy
     Route: 061
  4. HYDROCODONE [Concomitant]
     Active Substance: HYDROCODONE
     Indication: Pain
     Route: 065
  5. TESTOSTERONE [Concomitant]
     Active Substance: TESTOSTERONE
     Indication: Hormone replacement therapy
     Route: 065

REACTIONS (8)
  - Foot fracture [Recovering/Resolving]
  - Foot fracture [Recovered/Resolved]
  - Intestinal obstruction [Not Recovered/Not Resolved]
  - Tendon dislocation [Recovering/Resolving]
  - Ligament disorder [Recovering/Resolving]
  - Fall [Recovered/Resolved]
  - Hepatic cyst [Not Recovered/Not Resolved]
  - Intestinal cyst [Not Recovered/Not Resolved]

NARRATIVE: CASE EVENT DATE: 20240101
